FAERS Safety Report 13864243 (Version 1)
Quarter: 2017Q3

REPORT INFORMATION
  Report Type: Report from Study
  Country: US (occurrence: US)
  Receive Date: 20170814
  Receipt Date: 20170814
  Transmission Date: 20171127
  Serious: No
  Sender: FDA-Public Use
  Company Number: PHEH2017US025549

PATIENT
  Sex: Female

DRUGS (1)
  1. GILENYA [Suspect]
     Active Substance: FINGOLIMOD HYDROCHLORIDE
     Indication: MULTIPLE SCLEROSIS
     Dosage: 0.5 MG, QD
     Route: 048

REACTIONS (8)
  - Paraesthesia [Unknown]
  - Dizziness [Unknown]
  - Tremor [Unknown]
  - Heart rate increased [Recovered/Resolved]
  - Headache [Unknown]
  - Grip strength decreased [Unknown]
  - Pallor [Unknown]
  - Pain in extremity [Unknown]
